FAERS Safety Report 11827559 (Version 1)
Quarter: 2015Q4

REPORT INFORMATION
  Report Type: Report from Study
  Country: FR (occurrence: FR)
  Receive Date: 20151211
  Receipt Date: 20151211
  Transmission Date: 20160305
  Serious: Yes (Other)
  Sender: FDA-Public Use
  Company Number: FR-BAXTER-2015BAX066820

PATIENT
  Age: 30 Year
  Sex: Male

DRUGS (8)
  1. IVIG [Suspect]
     Active Substance: HUMAN IMMUNOGLOBULIN G
     Indication: BRONCHOSTENOSIS
  2. RITUXIMAB [Concomitant]
     Active Substance: RITUXIMAB
     Indication: BRONCHOSTENOSIS
  3. ENDOXAN 1000 MG, POUDRE POUR SOLUTION INJECTABLE [Suspect]
     Active Substance: CYCLOPHOSPHAMIDE
     Indication: LARYNGEAL STENOSIS
     Route: 042
  4. IVIG [Suspect]
     Active Substance: HUMAN IMMUNOGLOBULIN G
     Indication: LARYNGEAL STENOSIS
     Route: 042
  5. METHOTREXATE [Concomitant]
     Active Substance: METHOTREXATE
     Indication: LARYNGEAL STENOSIS
     Route: 065
  6. METHOTREXATE [Concomitant]
     Active Substance: METHOTREXATE
     Indication: BRONCHOSTENOSIS
  7. ENDOXAN 1000 MG, POUDRE POUR SOLUTION INJECTABLE [Suspect]
     Active Substance: CYCLOPHOSPHAMIDE
     Indication: BRONCHOSTENOSIS
  8. RITUXIMAB [Concomitant]
     Active Substance: RITUXIMAB
     Indication: LARYNGEAL STENOSIS
     Route: 065

REACTIONS (5)
  - Tracheal stenosis [Unknown]
  - Laryngeal stenosis [Unknown]
  - Pneumonia [Unknown]
  - Bronchostenosis [Unknown]
  - Acute respiratory distress syndrome [Unknown]
